FAERS Safety Report 16064172 (Version 1)
Quarter: 2019Q1

REPORT INFORMATION
  Report Type: Spontaneous
  Country: US (occurrence: US)
  Receive Date: 20190312
  Receipt Date: 20190312
  Transmission Date: 20190418
  Serious: No
  Sender: FDA-Public Use
  Company Number: PHEH2019US009975

PATIENT

DRUGS (1)
  1. GLEEVEC [Suspect]
     Active Substance: IMATINIB MESYLATE
     Dosage: UNK
     Route: 065

REACTIONS (1)
  - Myalgia [Recovered/Resolved]
